FAERS Safety Report 6344475-X (Version None)
Quarter: 2009Q3

REPORT INFORMATION
  Report Type: 
  Country: None (occurrence: None)
  Receive Date: 20090908
  Receipt Date: 20090828
  Transmission Date: 20100115
  Serious: Yes (Other)
  Sender: FDA-Public Use
  Company Number: NO-GENENTECH-289700

PATIENT

DRUGS (2)
  1. ACTIVASE [Suspect]
     Indication: DEEP VEIN THROMBOSIS
     Dosage: 20 MG, UNK
     Route: 042
  2. HEPARIN [Suspect]
     Indication: DEEP VEIN THROMBOSIS
     Route: 042

REACTIONS (4)
  - DRUG ADMINISTRATION ERROR [None]
  - INCORRECT DOSE ADMINISTERED [None]
  - PUNCTURE SITE HAEMORRHAGE [None]
  - SUBCUTANEOUS HAEMATOMA [None]
